FAERS Safety Report 5068605-5 (Version None)
Quarter: 2006Q3

REPORT INFORMATION
  Report Type: 
  Country: None (occurrence: None)
  Receive Date: 20060802
  Receipt Date: 20051229
  Transmission Date: 20061208
  Serious: No
  Sender: FDA-Public Use
  Company Number: US-BRISTOL-MYERS SQUIBB COMPANY-13232673

PATIENT
  Age: 74 Year
  Sex: Female
  Weight: 74 kg

DRUGS (5)
  1. COUMADIN [Suspect]
     Indication: PULMONARY THROMBOSIS
     Dosage: CHANGED DOSE ON 29-DEC-2005 TO COUMADIN 5 MG DAILY ALTERNATING WITH 2.5 MG DAILY
     Dates: start: 19790101
  2. COUMADIN [Suspect]
     Indication: CARDIOVASCULAR DISORDER
     Dosage: CHANGED DOSE ON 29-DEC-2005 TO COUMADIN 5 MG DAILY ALTERNATING WITH 2.5 MG DAILY
     Dates: start: 19790101
  3. CLORPRES [Concomitant]
  4. LEXAPRO [Concomitant]
  5. CIDER VINEGAR [Concomitant]
     Dosage: DISCONTINUED 2 WEEKS AGO
     Dates: end: 20051201

REACTIONS (1)
  - INTERNATIONAL NORMALISED RATIO DECREASED [None]
